FAERS Safety Report 9834324 (Version 3)
Quarter: 2014Q1

REPORT INFORMATION
  Report Type: Report from Study
  Country: ES (occurrence: ES)
  Receive Date: 20140122
  Receipt Date: 20140213
  Transmission Date: 20141002
  Serious: Yes (Hospitalization)
  Sender: FDA-Public Use
  Company Number: ES-ELI_LILLY_AND_COMPANY-ES201401003631

PATIENT
  Age: 55 Year
  Sex: Male
  Weight: 45 kg

DRUGS (8)
  1. NECITUMUMAB (11F8) (LY3012211) [Suspect]
     Indication: NON-SMALL CELL LUNG CANCER
     Dosage: 800 MG, DAY ONE AND 8 OF THREE WEEK CYCLE
     Route: 042
     Dates: start: 20131212, end: 20140102
  2. GEMCITABINE HYDROCHLORIDE [Suspect]
     Indication: NON-SMALL CELL LUNG CANCER
     Dosage: 1250 MG/M2, DAY ONE AND EIGHT OF 3 WEEK CYCLE
     Route: 042
     Dates: start: 20131212, end: 20140102
  3. CISPLATIN [Suspect]
     Indication: NON-SMALL CELL LUNG CANCER
     Dosage: 75 MG, DAY ONE OF EVERY THREE WEEK CYCLE
     Route: 042
     Dates: start: 20131212, end: 20140102
  4. ATROVENT [Concomitant]
     Indication: DYSPNOEA
     Dosage: UNK
     Route: 065
  5. DEXAMETHASONE [Concomitant]
     Indication: DYSPNOEA
     Dosage: UNK
     Route: 065
     Dates: start: 20140106
  6. NISTATIN [Concomitant]
     Indication: CANDIDA INFECTION
     Dosage: UNK
     Route: 065
     Dates: start: 20140108
  7. OXYGEN [Concomitant]
     Indication: DYSPNOEA
     Dosage: UNK
     Route: 065
  8. MORPHINE [Concomitant]
     Indication: CANCER PAIN
     Dosage: UNK
     Route: 065
     Dates: start: 20131231

REACTIONS (1)
  - Stomatitis [Not Recovered/Not Resolved]
